FAERS Safety Report 8572066-9 (Version None)
Quarter: 2012Q2

REPORT INFORMATION
  Report Type: 
  Country: None (occurrence: None)
  Receive Date: 20120418
  Receipt Date: 20100726
  Transmission Date: 20120825
  Serious: Yes (Other)
  Sender: FDA-Public Use
  Company Number: PHHY2010US49048

PATIENT
  Sex: Female

DRUGS (12)
  1. GABAPENTIN [Concomitant]
  2. LUNESTA [Concomitant]
  3. DIOVAN HCT [Suspect]
     Indication: HYPERTENSION
     Dosage: 1 TABLET (320/25MG) QD, ORAL;  160/12.5MG
     Route: 048
     Dates: start: 20080926
  4. LIPITOR [Concomitant]
  5. VESICARE [Concomitant]
  6. CYMABALTA (DULOXETINE HYDROCHLORIDE) [Concomitant]
  7. HYOSCYAMINE (HYOSCYAMINE) [Concomitant]
  8. ACETAMINOPHEN [Concomitant]
  9. SERTRALINE HYDROCHLORIDE [Concomitant]
  10. RANITIDINE HYDROCHLORIDE [Concomitant]
  11. TIZANIDINE HCL [Concomitant]
  12. HYDROCODONE BITARTRATE [Concomitant]

REACTIONS (7)
  - TREMOR [None]
  - DRUG DOSE OMISSION [None]
  - NAUSEA [None]
  - HYPERTENSION [None]
  - JOINT SWELLING [None]
  - HEADACHE [None]
  - PARAESTHESIA [None]
